FAERS Safety Report 7154221-8 (Version None)
Quarter: 2010Q4

REPORT INFORMATION
  Report Type: 
  Country: None (occurrence: None)
  Receive Date: 20101213
  Receipt Date: 20101208
  Transmission Date: 20110411
  Serious: Yes (Hospitalization)
  Sender: FDA-Public Use
  Company Number: US-B.I. PHARMACEUTICALS,INC./RIDGEFIELD-2010-BP-13965BP

PATIENT
  Sex: Male

DRUGS (12)
  1. SPIRIVA [Suspect]
     Indication: CHRONIC OBSTRUCTIVE PULMONARY DISEASE
     Dosage: 18 MCG
     Route: 055
     Dates: start: 20040101
  2. LOPRESSOR [Concomitant]
     Indication: HYPERTENSION
  3. DIGOXIN [Concomitant]
     Indication: ATRIAL FIBRILLATION
  4. ZOLOFT [Concomitant]
     Indication: DEPRESSION
  5. PREVACID [Concomitant]
     Indication: DYSPEPSIA
  6. XOPONEX [Concomitant]
     Indication: CHRONIC OBSTRUCTIVE PULMONARY DISEASE
  7. PULMICORT [Concomitant]
     Indication: CHRONIC OBSTRUCTIVE PULMONARY DISEASE
  8. COUMADIN [Concomitant]
     Indication: CEREBROVASCULAR ACCIDENT
  9. ALLEGRA [Concomitant]
     Indication: MULTIPLE ALLERGIES
  10. NEPHROCAP [Concomitant]
     Indication: PROPHYLAXIS
  11. FOLIC ACID [Concomitant]
     Indication: PROPHYLAXIS
  12. AVODART [Concomitant]
     Indication: PROSTATIC DISORDER

REACTIONS (9)
  - AORTIC ANEURYSM [None]
  - BACK INJURY [None]
  - CATHETER SITE INFECTION [None]
  - FALL [None]
  - LETHARGY [None]
  - RENAL FAILURE [None]
  - UPPER LIMB FRACTURE [None]
  - WHITE BLOOD CELL COUNT DECREASED [None]
  - WHITE BLOOD CELL COUNT INCREASED [None]
